FAERS Safety Report 7741613-9 (Version None)
Quarter: 2011Q3

REPORT INFORMATION
  Report Type: 
  Country: None (occurrence: None)
  Receive Date: 20110909
  Receipt Date: 20110829
  Transmission Date: 20111222
  Serious: Yes (Other)
  Sender: FDA-Public Use
  Company Number: US-ASTRAZENECA-2011SE18315

PATIENT
  Age: 63 Year
  Sex: Female
  Weight: 82.1 kg

DRUGS (9)
  1. CALCIUM CARBONATE [Concomitant]
  2. GLUCOSAMINE [Concomitant]
     Dosage: 750-600MG, 1 TABLET AS DIRECTED
     Route: 048
  3. ALPHA LIPOIC ACID [Concomitant]
     Route: 048
  4. ACETYLCARNITINE HCL [Concomitant]
     Route: 048
  5. ARIMIDEX [Suspect]
     Indication: BREAST CANCER
     Route: 048
     Dates: start: 20070101
  6. SYNTHROID [Concomitant]
     Route: 048
  7. MELATONIN [Concomitant]
     Dosage: 112MG-3MG, 1 PO AS DIRECTED
     Route: 048
  8. VIT D [Concomitant]
     Route: 048
  9. MULTI-VITAMIN [Concomitant]
     Route: 048

REACTIONS (7)
  - FEMUR FRACTURE [None]
  - MIGRAINE [None]
  - POSTMENOPAUSE [None]
  - RETINAL DETACHMENT [None]
  - NEUROPATHY PERIPHERAL [None]
  - FALL [None]
  - OSTEOPOROSIS [None]
